FAERS Safety Report 5765538-3 (Version None)
Quarter: 2008Q2

REPORT INFORMATION
  Report Type: 
  Country: None (occurrence: None)
  Receive Date: 20080611
  Receipt Date: 20080606
  Transmission Date: 20081010
  Serious: Yes (Hospitalization, Disabling, Other)
  Sender: FDA-Public Use
  Company Number: US-MERCK-0712USA08946

PATIENT
  Age: 55 Year
  Sex: Female
  Weight: 69 kg

DRUGS (5)
  1. FOSAMAX [Suspect]
     Indication: OSTEOPOROSIS
     Route: 048
     Dates: start: 20000228, end: 20060101
  2. FOSAMAX [Suspect]
     Route: 048
     Dates: end: 20070611
  3. VIOXX [Concomitant]
     Route: 048
  4. PROZAC [Concomitant]
     Indication: DEPRESSION
     Route: 065
  5. ATIVAN [Concomitant]
     Route: 065

REACTIONS (60)
  - ANAEMIA [None]
  - ANXIETY [None]
  - ANXIETY DISORDER [None]
  - ARTHROPATHY [None]
  - ASTHENIA [None]
  - BARRETT'S OESOPHAGUS [None]
  - BLOOD PRESSURE SYSTOLIC INCREASED [None]
  - BURNING SENSATION [None]
  - DELIRIUM [None]
  - DENTAL CARIES [None]
  - DEPRESSION [None]
  - DIAPHRAGMATIC HERNIA [None]
  - DISSOCIATIVE IDENTITY DISORDER [None]
  - DRUG ABUSE [None]
  - DRUG WITHDRAWAL SYNDROME [None]
  - EXOSTOSIS [None]
  - FACIAL PAIN [None]
  - FISTULA [None]
  - GINGIVAL ABSCESS [None]
  - GINGIVAL BLEEDING [None]
  - GINGIVAL DISORDER [None]
  - GINGIVAL INFECTION [None]
  - GLOSSITIS [None]
  - HEADACHE [None]
  - HERPES VIRUS INFECTION [None]
  - HIP ARTHROPLASTY [None]
  - HYPOAESTHESIA [None]
  - HYPONATRAEMIA [None]
  - IMPAIRED HEALING [None]
  - INJURY [None]
  - INSOMNIA [None]
  - IRON DEFICIENCY ANAEMIA [None]
  - JAW DISORDER [None]
  - JOINT RANGE OF MOTION DECREASED [None]
  - MALAISE [None]
  - NEOPLASM MALIGNANT [None]
  - NUMB CHIN SYNDROME [None]
  - ORAL INFECTION [None]
  - OSTEOMYELITIS [None]
  - OSTEONECROSIS [None]
  - OSTEOPENIA [None]
  - OSTEORADIONECROSIS [None]
  - PAIN [None]
  - PARAESTHESIA [None]
  - PERIODONTAL DISEASE [None]
  - PYREXIA [None]
  - RIB FRACTURE [None]
  - SENSATION OF HEAVINESS [None]
  - SINUSITIS [None]
  - SMALL INTESTINAL OBSTRUCTION [None]
  - SOMNAMBULISM [None]
  - SPINAL COMPRESSION FRACTURE [None]
  - STRESS [None]
  - SUBSTANCE ABUSE [None]
  - SWELLING [None]
  - TEMPOROMANDIBULAR JOINT SYNDROME [None]
  - TOOTH FRACTURE [None]
  - TRISMUS [None]
  - WEIGHT DECREASED [None]
  - WITHDRAWAL SYNDROME [None]
